FAERS Safety Report 21880115 (Version 1)
Quarter: 2023Q1

REPORT INFORMATION
  Report Type: Spontaneous
  Country: BR (occurrence: BR)
  Receive Date: 20230118
  Receipt Date: 20230118
  Transmission Date: 20230418
  Serious: Yes (Other)
  Sender: FDA-Public Use
  Company Number: BR-002147023-NVSC2023BR010149

PATIENT
  Age: 29 Year
  Sex: Male
  Weight: 106 kg

DRUGS (1)
  1. METHYLPHENIDATE HYDROCHLORIDE [Suspect]
     Active Substance: METHYLPHENIDATE HYDROCHLORIDE
     Indication: Attention deficit hyperactivity disorder
     Dosage: UNK, BID (STARTED ABOUT TWO YEARS)
     Route: 048

REACTIONS (2)
  - Disturbance in attention [Recovering/Resolving]
  - Product availability issue [Unknown]
